FAERS Safety Report 7552742-7 (Version None)
Quarter: 2011Q2

REPORT INFORMATION
  Report Type: 
  Country: None (occurrence: None)
  Receive Date: 20110616
  Receipt Date: 20110610
  Transmission Date: 20111010
  Serious: Yes (Other)
  Sender: FDA-Public Use
  Company Number: BR-PFIZER INC-2010022002

PATIENT
  Age: 50 Year
  Sex: Female
  Weight: 62 kg

DRUGS (8)
  1. NEULEPTIL [Concomitant]
     Indication: DEPRESSION
     Dosage: 10 DROPS, 2X/DAY
     Dates: start: 20060101
  2. VARENICLINE TARTRATE [Suspect]
     Dosage: 1 MG, EVERY 12 HOURS
     Route: 048
     Dates: start: 20100101, end: 20100501
  3. SERTRALINE HYDROCHLORIDE [Concomitant]
     Indication: DEPRESSION
     Dosage: 50 MG, UNK
     Dates: start: 20060101
  4. CLONAZEPAM [Concomitant]
     Indication: DEPRESSION
     Dosage: 2 MG, UNK
     Dates: start: 20060101
  5. VARENICLINE TARTRATE [Suspect]
     Indication: SMOKING CESSATION THERAPY
     Dosage: 0.5 MG, 1X/DAY
     Route: 048
     Dates: start: 20100212
  6. DEPAKENE [Concomitant]
     Indication: DEPRESSION
     Dosage: 500 MG, UNK
     Dates: start: 20060101
  7. VARENICLINE TARTRATE [Suspect]
     Indication: TOBACCO USER
     Dosage: 0.5 MG, 1X/DAY
     Route: 048
     Dates: start: 20100501, end: 20100101
  8. VARENICLINE TARTRATE [Suspect]
     Dosage: 1 MG, EVERY 12 HOURS
     Route: 048
     Dates: start: 20100706, end: 20100101

REACTIONS (16)
  - PSYCHIATRIC SYMPTOM [None]
  - NERVOUSNESS [None]
  - ABNORMAL BEHAVIOUR [None]
  - WEIGHT INCREASED [None]
  - NAUSEA [None]
  - DEPRESSION [None]
  - HEART RATE INCREASED [None]
  - DIZZINESS [None]
  - DECREASED APPETITE [None]
  - FEELING ABNORMAL [None]
  - FEELING GUILTY [None]
  - TOBACCO USER [None]
  - FEAR [None]
  - TREMOR [None]
  - SUICIDAL IDEATION [None]
  - DEPRESSED MOOD [None]
